FAERS Safety Report 15017730 (Version 1)
Quarter: 2018Q2

REPORT INFORMATION
  Report Type: Spontaneous
  Country: DE (occurrence: DE)
  Receive Date: 20180615
  Receipt Date: 20180615
  Transmission Date: 20180711
  Serious: Yes (Hospitalization)
  Sender: FDA-Public Use
  Company Number: DE-TEVA-2018-DE-908394

PATIENT
  Age: 79 Year
  Sex: Female
  Weight: 57 kg

DRUGS (9)
  1. IBUPROFEN. [Concomitant]
     Active Substance: IBUPROFEN
     Dosage: 800 MG, BEDARF, TABLETTEN
     Route: 048
  2. CYTARABINE. [Suspect]
     Active Substance: CYTARABINE
     Dosage: 160 MG, NACH SCHEMA, INJEKTIONS-/INFUSIONSL?SUNG
     Route: 042
  3. LEVOTHYROXINE SODIUM. [Concomitant]
     Active Substance: LEVOTHYROXINE SODIUM
     Dosage: 75 ?G, 1-0-0-0, TABLETTEN
     Route: 048
  4. METOPROLOL. [Concomitant]
     Active Substance: METOPROLOL
     Dosage: 47.5 MG, 1-0-1-0, TABLETTEN
     Route: 048
  5. CIPROFLOXACIN. [Concomitant]
     Active Substance: CIPROFLOXACIN
     Dosage: 500 MG, NACH SCHEMA, TABLETTEN
     Route: 048
  6. AMPHOTERICIN B. [Concomitant]
     Active Substance: AMPHOTERICIN B
     Dosage: 1 ML, NACH SCHEMA, SUSPENSION
     Route: 048
  7. MITOXANTRONE [Suspect]
     Active Substance: MITOXANTRONE HYDROCHLORIDE
     Dosage: 6 MG, NACH SCHEMA, INJEKTIONS-/INFUSIONSL?SUNG
     Route: 042
  8. PANTOPRAZOL [Concomitant]
     Active Substance: PANTOPRAZOLE SODIUM
     Dosage: 40 MG, 1-0-0-0, TABLETTEN
     Route: 048
  9. TRIMETHOPRIM / SULFAMETHOXAZOL [Concomitant]
     Dosage: 800|160 MG, NACH SCHEMA, TABLETTEN
     Route: 048

REACTIONS (4)
  - Soft tissue infection [Unknown]
  - Swelling [Unknown]
  - Acute myeloid leukaemia [Unknown]
  - Erythema [Unknown]
